FAERS Safety Report 6618068-0 (Version None)
Quarter: 2010Q1

REPORT INFORMATION
  Report Type: 
  Country: None (occurrence: None)
  Receive Date: 20100308
  Receipt Date: 20100226
  Transmission Date: 20100710
  Serious: Yes (Death, Life-Threatening)
  Sender: FDA-Public Use
  Company Number: NO-ROCHE-687403

PATIENT
  Sex: Female
  Weight: 71 kg

DRUGS (2)
  1. RIVOTRIL [Suspect]
     Indication: MYOCLONIC EPILEPSY
     Dosage: EVENING.
     Route: 048
  2. ORFIRIL [Suspect]
     Indication: MYOCLONIC EPILEPSY
     Dosage: DOSE: 900 MG MORNING AND 600 MG IN THE EVENING.
     Route: 048

REACTIONS (2)
  - COMPLETED SUICIDE [None]
  - SUICIDE ATTEMPT [None]
